FAERS Safety Report 20154810 (Version 1)
Quarter: 2021Q4

REPORT INFORMATION
  Report Type: Spontaneous
  Country: CN (occurrence: CN)
  Receive Date: 20211207
  Receipt Date: 20211207
  Transmission Date: 20220303
  Serious: Yes (Disabling)
  Sender: FDA-Public Use
  Company Number: CN-ABBOTT-2021A-1343564

PATIENT
  Age: 44 Year
  Sex: Male
  Weight: 55 kg

DRUGS (3)
  1. CLARITHROMYCIN [Suspect]
     Active Substance: CLARITHROMYCIN
     Indication: Product used for unknown indication
     Route: 048
  2. BISMUTH SUBCITRATE [Concomitant]
     Active Substance: BISMUTH SUBCITRATE
     Indication: Helicobacter infection
     Dosage: DAILY DOSE: 1.2 GRAM
     Route: 048
     Dates: start: 20211024, end: 20211025
  3. ESOMEPRAZOLE MAGNESIUM [Concomitant]
     Active Substance: ESOMEPRAZOLE MAGNESIUM
     Indication: Helicobacter infection
     Dosage: DAILY DOSE: 40 MG
     Route: 048
     Dates: start: 20211024, end: 20211125

REACTIONS (3)
  - Skin exfoliation [Recovered/Resolved]
  - Rash [Recovered/Resolved]
  - Pruritus [Recovered/Resolved]

NARRATIVE: CASE EVENT DATE: 20211026
